FAERS Safety Report 4879618-8 (Version None)
Quarter: 2006Q1

REPORT INFORMATION
  Report Type: 
  Country: None (occurrence: None)
  Receive Date: 20060113
  Receipt Date: 20060110
  Transmission Date: 20060701
  Serious: Yes (Death)
  Sender: FDA-Public Use
  Company Number: 2006UW00575

PATIENT
  Age: 52 Year
  Sex: Female

DRUGS (3)
  1. SEROQUEL [Suspect]
     Indication: BIPOLAR DISORDER
     Route: 048
  2. BIAXIN [Suspect]
  3. ALCOHOL [Suspect]

REACTIONS (2)
  - SUDDEN DEATH [None]
  - TREATMENT NONCOMPLIANCE [None]
